FAERS Safety Report 6166805-4 (Version None)
Quarter: 2009Q2

REPORT INFORMATION
  Report Type: 
  Country: None (occurrence: None)
  Receive Date: 20090424
  Receipt Date: 20090414
  Transmission Date: 20091009
  Serious: Yes (Other)
  Sender: FDA-Public Use
  Company Number: US-ROCHE-620459

PATIENT
  Sex: Female
  Weight: 62.1 kg

DRUGS (6)
  1. BONIVA [Suspect]
     Indication: OSTEOPOROSIS
     Route: 042
     Dates: end: 20090305
  2. MIDRIN [Concomitant]
     Indication: MIGRAINE
     Dosage: FREQ: PRN; TAKEN FOR YEARS
     Route: 048
  3. NEXIUM [Concomitant]
     Dosage: TAKEN FOR YEARS
     Route: 048
  4. INNOPRAN [Concomitant]
     Indication: HYPERTENSION
     Dosage: DOSE: 120 XL, FREQUENCY: 1 DAILY
     Route: 048
  5. XANAX [Concomitant]
     Indication: ANXIETY
     Dosage: TAKEN FOR YEARS; DOSE: 0.25
     Route: 048
  6. ZANPROL [Concomitant]
     Dosage: DOSE: 1 DAILY; TAKEN FOR YEARS
     Route: 048

REACTIONS (2)
  - BLOOD PRESSURE INCREASED [None]
  - VISION BLURRED [None]
